FAERS Safety Report 7967138-3 (Version None)
Quarter: 2011Q4

REPORT INFORMATION
  Report Type: 
  Country: None (occurrence: None)
  Receive Date: 20111205
  Receipt Date: 20111117
  Transmission Date: 20120403
  Serious: Yes (Hospitalization)
  Sender: FDA-Public Use
  Company Number: GER/SPN/11/0022154

PATIENT
  Age: 78 Year
  Sex: Male

DRUGS (11)
  1. HYDRALAZINE HCL [Concomitant]
  2. ATORVASTATIN CALCIUM [Suspect]
     Indication: HYPERLIPIDAEMIA
     Dosage: 40 MG, 1 IN 1 D, ORAL
     Route: 048
     Dates: end: 20110604
  3. ASPIRIN [Suspect]
     Indication: PRODUCT USED FOR UNKNOWN INDICATION
     Dosage: 150 MG, 1 IN 1 D, ORAL
     Route: 048
     Dates: start: 20080801, end: 20110604
  4. INSULIN MIXTARD (INSULIN INIT) [Concomitant]
  5. TAMSULOSIN HCL [Concomitant]
  6. AMIODARONE HYDROCHLORIDE [Suspect]
     Indication: PRODUCT USED FOR UNKNOWN INDICATION
     Dosage: 200 MG, 1 IN 1 D, ORAL
     Route: 048
     Dates: start: 20101101, end: 20110604
  7. UNIKET (ISOSORBIDE MONONITRATE) [Concomitant]
  8. RANITIDINE HYDROCHLORIDE [Concomitant]
  9. CLOPIDOGREL [Suspect]
     Indication: PRODUCT USED FOR UNKNOWN INDICATION
     Dosage: 75 MG, 1 IN 1 D, ORAL
     Route: 048
     Dates: start: 20080801, end: 20110604
  10. BISOPROLOL FUMARATE [Concomitant]
  11. SINTROM [Suspect]
     Indication: PRODUCT USED FOR UNKNOWN INDICATION
     Dosage: ORAL
     Route: 048
     Dates: end: 20110604

REACTIONS (7)
  - FALL [None]
  - ATRIAL FIBRILLATION [None]
  - INTERNATIONAL NORMALISED RATIO DECREASED [None]
  - BLOOD PRESSURE INCREASED [None]
  - CEREBRAL HAEMATOMA [None]
  - CEREBRAL ATROPHY [None]
  - DRUG INTERACTION [None]
